FAERS Safety Report 15363490 (Version 2)
Quarter: 2018Q3

REPORT INFORMATION
  Report Type: Spontaneous
  Country: PL (occurrence: PL)
  Receive Date: 20180907
  Receipt Date: 20180918
  Transmission Date: 20181010
  Serious: Yes (Other)
  Sender: FDA-Public Use
  Company Number: PL-BAXTER-2018BAX022850

PATIENT
  Age: 44 Year
  Sex: Female

DRUGS (10)
  1. THALIDOMIDE [Suspect]
     Active Substance: THALIDOMIDE
     Dosage: FOLLOWED BY 4 CYCLES OF CTD REGIMEN
     Route: 065
     Dates: start: 2011
  2. ZOLEDRONIC ACID [Concomitant]
     Active Substance: ZOLEDRONIC ACID
     Indication: PLASMA CELL MYELOMA
     Route: 065
     Dates: start: 201112, end: 201201
  3. ENDOXAN [Suspect]
     Active Substance: CYCLOPHOSPHAMIDE
     Dosage: 2 CYCLES UNDER VMBCP REGIMEN
     Route: 065
     Dates: start: 201206, end: 201208
  4. THALIDOMIDE [Suspect]
     Active Substance: THALIDOMIDE
     Indication: PLASMA CELL MYELOMA
     Dosage: 4 CYCLES UNDER CTD REGIMEN
     Route: 065
     Dates: start: 20110811, end: 20111012
  5. VINCRISTINE [Suspect]
     Active Substance: VINCRISTINE
     Indication: PLASMA CELL MYELOMA
     Dosage: 2 CYCLES UNDER VMBCP REGIMEN
     Route: 065
     Dates: start: 201206, end: 201208
  6. CARMUSTINE [Suspect]
     Active Substance: CARMUSTINE
     Indication: PLASMA CELL MYELOMA
     Dosage: 2 CYCLES UNDER VMBCP REGIMEN
     Route: 065
     Dates: start: 201206, end: 201208
  7. DEXAMETHASONE. [Suspect]
     Active Substance: DEXAMETHASONE
     Indication: PLASMA CELL MYELOMA
     Dosage: 4 CYCLES UNDER CTD REGIMEN
     Route: 065
     Dates: start: 20110811, end: 20111012
  8. PREDNISONE. [Suspect]
     Active Substance: PREDNISONE
     Indication: PLASMA CELL MYELOMA
     Dosage: 2 CYCLES UNDER VMBCP REGIMEN
     Route: 065
     Dates: start: 201206, end: 201208
  9. ENDOXAN [Suspect]
     Active Substance: CYCLOPHOSPHAMIDE
     Indication: PLASMA CELL MYELOMA
     Dosage: 4 CYCLES UNDER CTD REGIMEN
     Route: 065
     Dates: start: 20110811, end: 20111012
  10. MELPHALAN. [Suspect]
     Active Substance: MELPHALAN
     Indication: PLASMA CELL MYELOMA
     Dosage: 2 CYCLES UNDER VMBCP REGIMEN
     Route: 065
     Dates: start: 201206, end: 201208

REACTIONS (2)
  - Neuropathy peripheral [Unknown]
  - Drug intolerance [Unknown]

NARRATIVE: CASE EVENT DATE: 2011
